FAERS Safety Report 15230856 (Version 2)
Quarter: 2018Q4

REPORT INFORMATION
  Report Type: Report from Study
  Country: DE (occurrence: DE)
  Receive Date: 20180802
  Receipt Date: 20181009
  Transmission Date: 20190204
  Serious: Yes (Hospitalization, Other)
  Sender: FDA-Public Use
  Company Number: DE-TORRENT-00009116

PATIENT
  Age: 79 Year
  Sex: Female
  Weight: 67 kg

DRUGS (21)
  1. ISOSORBIDE DINITRATE. [Suspect]
     Active Substance: ISOSORBIDE DINITRATE
     Indication: CORONARY ARTERY DISEASE
     Dosage: 1 DF (DAILY DOSE), , ORAL
     Route: 048
     Dates: start: 20000130, end: 20000218
  2. DIAZEPAM. [Suspect]
     Active Substance: DIAZEPAM
     Indication: SEIZURE
     Dosage: UNKNOWN
     Route: 042
     Dates: start: 20000218, end: 20000218
  3. TRAMAL [Suspect]
     Active Substance: TRAMADOL
     Indication: PAIN
     Route: 048
     Dates: start: 20000219, end: 20000223
  4. AMLODIPINE [Suspect]
     Active Substance: AMLODIPINE BESYLATE
     Indication: CORONARY ARTERY DISEASE
     Dosage: 5 MG (DAILY DOSE), , ORAL
     Route: 048
     Dates: start: 20000130, end: 20000220
  5. LUMINAL [Suspect]
     Active Substance: PHENOBARBITAL SODIUM
     Indication: SEIZURE
     Dosage: UNKNOWN
     Route: 030
     Dates: start: 20000225, end: 20000227
  6. BEN-U-RON [Concomitant]
     Active Substance: ACETAMINOPHEN
     Indication: PAIN
     Dosage: UNKNOWN
     Route: 054
     Dates: start: 20000226, end: 20000226
  7. NORVASC [Concomitant]
     Active Substance: AMLODIPINE BESYLATE
     Indication: CORONARY ARTERY DISEASE
     Dosage: DOSE: 1
     Route: 048
     Dates: start: 20000130, end: 20000227
  8. ACETYLSALICYLIC ACID [Suspect]
     Active Substance: ASPIRIN
     Indication: CORONARY ARTERY DISEASE
     Dosage: 100 MG (DAILY DOSE), , ORAL
     Route: 048
     Dates: start: 20000130, end: 20000227
  9. TEGRETAL [Suspect]
     Active Substance: CARBAMAZEPINE
     Indication: SEIZURE
     Dosage: DOSE UNIT: 200 MG (600 MG (DAILY DOSE), , ORAL  )
     Route: 048
     Dates: start: 20000125, end: 20000224
  10. ZANTAC [Suspect]
     Active Substance: RANITIDINE HYDROCHLORIDE
     Indication: PROPHYLAXIS
     Dosage: 1, DOSE UNIT: 300 MG
     Route: 048
     Dates: start: 20000225, end: 20000227
  11. CORANGIN [Suspect]
     Active Substance: ISOSORBIDE MONONITRATE
     Indication: CORONARY ARTERY DISEASE
     Dosage: 1 DF (DAILY DOSE), , ORAL
     Route: 048
     Dates: start: 20000218, end: 20000224
  12. FURORESE [Suspect]
     Active Substance: FUROSEMIDE
     Indication: OEDEMA
     Dosage: DOSE: 1, DOSE UNIT: 40 MG
     Route: 048
     Dates: start: 20000218, end: 20000224
  13. ISOSORBIDE MONONITRATE. [Suspect]
     Active Substance: ISOSORBIDE MONONITRATE
     Indication: CORONARY ARTERY DISEASE
     Dosage: 1 DF (DAILY DOSE), ORAL
     Route: 048
     Dates: start: 20000218
  14. FUROSEMID [Suspect]
     Active Substance: FUROSEMIDE
     Indication: OEDEMA
     Dosage: DOSE UNIT: 40 MG
     Route: 048
     Dates: start: 20000218, end: 20000224
  15. ISMO [Suspect]
     Active Substance: ISOSORBIDE MONONITRATE
     Indication: CORONARY ARTERY DISEASE
     Dosage: DOSE: 1, DOSE UNIT: 20 MG
     Route: 048
     Dates: start: 20000225, end: 20000227
  16. PHENHYDAN [Suspect]
     Active Substance: PHENYTOIN
     Indication: SEIZURE
     Dosage: DOSE UNIT: 100 MG
     Route: 048
     Dates: start: 20000226, end: 20000226
  17. RIVOTRIL [Suspect]
     Active Substance: CLONAZEPAM
     Indication: SEIZURE
     Dosage: UNKNOWN
     Route: 042
     Dates: start: 20000224, end: 20000224
  18. PARACETAMOL [Concomitant]
     Active Substance: ACETAMINOPHEN
     Indication: PAIN
     Dosage: ORAL
     Route: 054
     Dates: start: 20000226, end: 20000226
  19. EUSAPRIM [Suspect]
     Active Substance: SULFAMETHOXAZOLE\TRIMETHOPRIM
     Indication: CYSTITIS
     Dosage: 2 DF (DAILY DOSE), , ORAL
     Route: 048
     Dates: start: 20000226, end: 20000227
  20. LASIX [Suspect]
     Active Substance: FUROSEMIDE
     Indication: CORONARY ARTERY DISEASE
     Dosage: UNKNOWN
     Route: 048
     Dates: start: 20000225, end: 20000227
  21. RANITIC [Suspect]
     Active Substance: RANITIDINE HYDROCHLORIDE
     Indication: GASTRIC ULCER
     Dosage: UNKNOWN
     Route: 048
     Dates: start: 20000218, end: 20000224

REACTIONS (12)
  - Eyelid oedema [Recovered/Resolved]
  - Rash erythematous [Recovered/Resolved]
  - Lip erosion [Recovered/Resolved]
  - Mucosal erosion [Recovered/Resolved]
  - Erythema [Recovered/Resolved]
  - Conjunctivitis [Recovered/Resolved]
  - Rash macular [Recovered/Resolved]
  - Pruritus [Recovered/Resolved]
  - Blister [Recovered/Resolved]
  - Mouth ulceration [Recovered/Resolved]
  - Genital erosion [Recovered/Resolved]
  - Stevens-Johnson syndrome [Recovered/Resolved]

NARRATIVE: CASE EVENT DATE: 20000227
